FAERS Safety Report 18387805 (Version 2)
Quarter: 2021Q2

REPORT INFORMATION
  Report Type: Report from Study
  Country: US (occurrence: US)
  Receive Date: 20201015
  Receipt Date: 20210424
  Transmission Date: 20210717
  Serious: No
  Sender: FDA-Public Use
  Company Number: NVSC2020US272094

PATIENT
  Sex: Female

DRUGS (1)
  1. COSENTYX [Suspect]
     Active Substance: SECUKINUMAB
     Indication: PSORIASIS
     Dosage: 300 MG, QMO
     Route: 058
     Dates: start: 20200630

REACTIONS (5)
  - Erythema [Unknown]
  - Anxiety [Unknown]
  - Skin exfoliation [Unknown]
  - Rash [Unknown]
  - Pain in extremity [Unknown]
